FAERS Safety Report 11875989 (Version 1)
Quarter: 2015Q4

REPORT INFORMATION
  Report Type: Spontaneous
  Country: US (occurrence: US)
  Receive Date: 20151229
  Receipt Date: 20151229
  Transmission Date: 20160305
  Serious: Yes (Hospitalization, Other)
  Sender: FDA-Public Use
  Company Number: US-ASTRAZENECA-2015SF30068

PATIENT
  Sex: Female
  Weight: 53.5 kg

DRUGS (3)
  1. LOMOTIL [Concomitant]
     Active Substance: ATROPINE SULFATE\DIPHENOXYLATE HYDROCHLORIDE
     Indication: ABDOMINAL DISCOMFORT
     Dosage: AS REQUIRED
  2. EXCEDRIN OTC [Concomitant]
     Indication: HEADACHE
  3. NEXIUM [Suspect]
     Active Substance: ESOMEPRAZOLE MAGNESIUM
     Indication: DYSPEPSIA
     Dosage: DAILY
     Route: 048
     Dates: start: 2001, end: 2008

REACTIONS (5)
  - Wrist fracture [Unknown]
  - Fall [Unknown]
  - Gait disturbance [Unknown]
  - Hip fracture [Unknown]
  - Bone density decreased [Unknown]
